FAERS Safety Report 9786283 (Version 2)
Quarter: 2014Q1

REPORT INFORMATION
  Report Type: Spontaneous
  Country: DE (occurrence: None)
  Receive Date: 20131224
  Receipt Date: 20140115
  Transmission Date: 20141002
  Serious: Yes (Hospitalization)
  Sender: FDA-Public Use
  Company Number: FK201305462

PATIENT
  Age: 62 Year
  Sex: Male

DRUGS (6)
  1. FLUOROURACIL [Suspect]
     Indication: RECTAL CANCER METASTATIC
  2. LEUCOVORIN CALCIUM [Suspect]
     Indication: RECTAL CANCER METASTATIC
  3. OXALIPLATIN [Suspect]
     Indication: RECTAL CANCER METASTATIC
  4. PHENPROCOUMON [Concomitant]
  5. IRINOTECAN [Concomitant]
  6. BEVACIZUMAB [Concomitant]

REACTIONS (3)
  - Pulmonary granuloma [None]
  - Pleural effusion [None]
  - Malignant neoplasm progression [None]
